FAERS Safety Report 16839642 (Version 1)
Quarter: 2019Q3

REPORT INFORMATION
  Report Type: Spontaneous
  Country: CA (occurrence: CA)
  Receive Date: 20190923
  Receipt Date: 20190923
  Transmission Date: 20191005
  Serious: Yes (Other)
  Sender: FDA-Public Use
  Company Number: CA-PFIZER INC-2019407592

PATIENT
  Age: 24 Year
  Sex: Female
  Weight: 64 kg

DRUGS (6)
  1. METHOTREXATE SODIUM. [Suspect]
     Active Substance: METHOTREXATE SODIUM
     Dosage: UNK
     Route: 048
  2. ELAVIL [ALLOPURINOL] [Concomitant]
     Active Substance: ALLOPURINOL
     Dosage: UNK UNK, AS NEEDED
  3. ENTOCORT [Suspect]
     Active Substance: BUDESONIDE
     Dosage: UNK
  4. PENTASA [Suspect]
     Active Substance: MESALAMINE
     Dosage: UNK
  5. CIPRO [Suspect]
     Active Substance: CIPROFLOXACIN HYDROCHLORIDE
     Dosage: UNK
  6. FLAGYL [METRONIDAZOLE BENZOATE] [Suspect]
     Active Substance: METRONIDAZOLE BENZOATE
     Dosage: UNK

REACTIONS (3)
  - Anxiety [Unknown]
  - Crohn^s disease [Unknown]
  - Drug ineffective [Unknown]
